FAERS Safety Report 4771962-8 (Version None)
Quarter: 2005Q3

REPORT INFORMATION
  Report Type: 
  Country: None (occurrence: None)
  Receive Date: 20050916
  Receipt Date: 20050914
  Transmission Date: 20060218
  Serious: Yes (Death)
  Sender: FDA-Public Use
  Company Number: PHBS2005JP13529

PATIENT
  Age: 5 Month
  Sex: Male
  Weight: 6 kg

DRUGS (1)
  1. VOLTAREN [Suspect]
     Indication: PYREXIA
     Route: 048
     Dates: start: 19960101

REACTIONS (1)
  - ENCEPHALOPATHY [None]
